FAERS Safety Report 4818133-4 (Version None)
Quarter: 2005Q4

REPORT INFORMATION
  Report Type: 
  Country: None (occurrence: None)
  Receive Date: 20051102
  Receipt Date: 20050707
  Transmission Date: 20060501
  Serious: Yes (Other)
  Sender: FDA-Public Use
  Company Number: US-MERCK-0507USA01352

PATIENT
  Age: 82 Year
  Sex: Female

DRUGS (6)
  1. VIOXX [Suspect]
     Indication: ARTHRITIS
     Route: 048
     Dates: start: 19990101, end: 20030101
  2. ALTACE [Concomitant]
     Indication: HYPERTENSION
     Route: 048
     Dates: start: 20030101
  3. METOPROLOL [Concomitant]
     Indication: HYPERTENSION
     Route: 048
     Dates: start: 20030101
  4. COVERA-HS [Concomitant]
     Route: 048
     Dates: end: 20020101
  5. SPIRONOLACTONE [Concomitant]
     Route: 048
     Dates: start: 20030101
  6. ASPIRIN [Concomitant]
     Route: 048
     Dates: start: 20000101

REACTIONS (3)
  - DIABETES MELLITUS [None]
  - INJURY [None]
  - MYOCARDIAL INFARCTION [None]
